FAERS Safety Report 5273380-5 (Version None)
Quarter: 2007Q1

REPORT INFORMATION
  Report Type: 
  Country: None (occurrence: None)
  Receive Date: 20070322
  Receipt Date: 20070314
  Transmission Date: 20070707
  Serious: Yes (Hospitalization)
  Sender: FDA-Public Use
  Company Number: US-ELI_LILLY_AND_COMPANY-US200703002849

PATIENT
  Age: 71 Year
  Sex: Female

DRUGS (4)
  1. FORTEO [Suspect]
     Indication: OSTEOPOROSIS
     Dosage: 20 UG, UNK
     Dates: start: 20060801, end: 20070101
  2. FORTEO [Suspect]
     Dosage: 20 UG, UNK
     Dates: start: 20070101
  3. LEVOXYL [Concomitant]
  4. COLAZEPAM [Concomitant]

REACTIONS (2)
  - AMNESIA [None]
  - FEELING ABNORMAL [None]
